FAERS Safety Report 5496216-6 (Version None)
Quarter: 2007Q4

REPORT INFORMATION
  Report Type: 
  Country: None (occurrence: None)
  Receive Date: 20071025
  Receipt Date: 20070313
  Transmission Date: 20080405
  Serious: No
  Sender: FDA-Public Use
  Company Number: A0643035A

PATIENT
  Age: 59 Year
  Sex: Female

DRUGS (16)
  1. ADVAIR DISKUS 100/50 [Suspect]
     Dosage: 1PUFF TWICE PER DAY
     Route: 055
     Dates: start: 20070305
  2. NEXIUM [Concomitant]
  3. BENICAR [Concomitant]
  4. ATENOLOL [Concomitant]
  5. LYRICA [Concomitant]
  6. MULTI-VITAMIN [Concomitant]
  7. KLONOPIN [Concomitant]
  8. ALLEGRA [Concomitant]
  9. ZOLOFT [Concomitant]
  10. TOPAMAX [Concomitant]
  11. LANTUS [Concomitant]
  12. NOVOLOG [Concomitant]
  13. UNKNOWN MEDICATION [Concomitant]
     Route: 042
  14. SOLU-MEDROL [Concomitant]
  15. COMPAZINE [Concomitant]
  16. NASONEX [Concomitant]

REACTIONS (4)
  - INSOMNIA [None]
  - NERVOUSNESS [None]
  - PHARYNGOLARYNGEAL PAIN [None]
  - TREMOR [None]
